FAERS Safety Report 11687658 (Version 1)
Quarter: 2015Q4

REPORT INFORMATION
  Report Type: Spontaneous
  Country: US (occurrence: US)
  Receive Date: 20151030
  Receipt Date: 20151030
  Transmission Date: 20160304
  Serious: Yes (Other)
  Sender: FDA-Public Use
  Company Number: US-JNJFOC-20151017062

PATIENT
  Age: 70 Year
  Sex: Female
  Weight: 53.52 kg

DRUGS (4)
  1. CAPOTEN [Concomitant]
     Active Substance: CAPTOPRIL
     Indication: HYPERTENSION
     Route: 048
  2. XARELTO [Suspect]
     Active Substance: RIVAROXABAN
     Indication: THROMBOSIS PROPHYLAXIS
     Route: 048
     Dates: start: 20150914, end: 20151005
  3. XARELTO [Suspect]
     Active Substance: RIVAROXABAN
     Indication: THROMBOSIS PROPHYLAXIS
     Route: 048
     Dates: start: 20150903, end: 20150914
  4. XARELTO [Suspect]
     Active Substance: RIVAROXABAN
     Indication: THROMBOSIS PROPHYLAXIS
     Route: 048
     Dates: start: 20151005, end: 20151020

REACTIONS (7)
  - Abdominal pain upper [Recovered/Resolved]
  - Paraesthesia [Not Recovered/Not Resolved]
  - Skin discolouration [Recovered/Resolved]
  - Pain in extremity [Recovered/Resolved]
  - Deep vein thrombosis [Recovered/Resolved]
  - Burning sensation [Recovered/Resolved]
  - Thrombosis [Not Recovered/Not Resolved]

NARRATIVE: CASE EVENT DATE: 20150914
